FAERS Safety Report 8157428-6 (Version None)
Quarter: 2012Q1

REPORT INFORMATION
  Report Type: 
  Country: None (occurrence: None)
  Receive Date: 20120222
  Receipt Date: 20120220
  Transmission Date: 20120608
  Serious: No
  Sender: FDA-Public Use
  Company Number: US-PFIZER INC-2012044576

PATIENT
  Sex: Male
  Weight: 63.5 kg

DRUGS (7)
  1. LISINOPRIL [Concomitant]
     Indication: HYPERTENSION
     Dosage: 40 MG, DAILY
  2. CRESTOR [Suspect]
     Indication: BLOOD CHOLESTEROL INCREASED
     Dosage: 20MG, DAILY
     Dates: start: 20120201, end: 20120201
  3. ACETAMINOPHEN [Suspect]
     Indication: PAIN
     Dosage: UNK
     Dates: start: 20120201
  4. COENZYME Q10 [Suspect]
     Indication: PAIN
     Dosage: 100 IU, DAILY
     Dates: start: 20120213
  5. VITAMIN E [Concomitant]
     Dosage: 100 MG, DAILY
  6. ATENOLOL [Concomitant]
     Indication: HYPERTENSION
     Dosage: 25 MG, DAILY
  7. IBUPROFEN (ADVIL) [Suspect]
     Indication: PAIN
     Dosage: UNK
     Dates: start: 20120201

REACTIONS (5)
  - BACK PAIN [None]
  - CHEST PAIN [None]
  - DRUG INEFFECTIVE [None]
  - PAIN IN EXTREMITY [None]
  - INSOMNIA [None]
